FAERS Safety Report 7514753-7 (Version None)
Quarter: 2011Q2

REPORT INFORMATION
  Report Type: 
  Country: None (occurrence: None)
  Receive Date: 20110526
  Receipt Date: 20110526
  Transmission Date: 20111010
  Serious: Yes (Other)
  Sender: FDA-Public Use
  Company Number: None

PATIENT
  Sex: Female
  Weight: 74.8435 kg

DRUGS (2)
  1. SERTRALINE HYDROCHLORIDE [Suspect]
     Indication: ANXIETY
     Dosage: 200MG DAILY (ORAL) O47
     Route: 048
     Dates: start: 20110310, end: 20110429
  2. SERTRALINE HYDROCHLORIDE [Suspect]
     Indication: DEPRESSION
     Dosage: 200MG DAILY (ORAL) O47
     Route: 048
     Dates: start: 20110310, end: 20110429

REACTIONS (1)
  - SEROTONIN SYNDROME [None]
